FAERS Safety Report 24904950 (Version 1)
Quarter: 2025Q1

REPORT INFORMATION
  Report Type: Spontaneous
  Country: US (occurrence: US)
  Receive Date: 20250130
  Receipt Date: 20250130
  Transmission Date: 20250409
  Serious: No
  Sender: AMERICAN REGENT
  Company Number: US-AMERICAN REGENT INC-2024001114

PATIENT
  Age: 34 Year
  Sex: Female

DRUGS (5)
  1. ESTRADIOL VALERATE [Suspect]
     Active Substance: ESTRADIOL VALERATE
     Indication: In vitro fertilisation
     Route: 030
     Dates: start: 20240112
  2. ESTRADIOL VALERATE [Suspect]
     Active Substance: ESTRADIOL VALERATE
     Indication: Supportive care
  3. PROGESTERONE [Concomitant]
     Active Substance: PROGESTERONE
     Indication: In vitro fertilisation
     Route: 065
     Dates: start: 20240131, end: 20240402
  4. PROGESTERONE [Concomitant]
     Active Substance: PROGESTERONE
     Indication: Supportive care
  5. Prenatal + Omega 3 fish oil [Concomitant]
     Indication: Supportive care
     Route: 065

REACTIONS (8)
  - Exposure during pregnancy [Unknown]
  - Vaginal haemorrhage [Recovered/Resolved]
  - Product contamination physical [Unknown]
  - Product administration error [Unknown]
  - Product leakage [Unknown]
  - Product dose omission issue [Recovered/Resolved]
  - Product use in unapproved indication [Not Recovered/Not Resolved]
  - Contraindicated product administered [Unknown]

NARRATIVE: CASE EVENT DATE: 20240112
